FAERS Safety Report 18285823 (Version 1)
Quarter: 2020Q3

REPORT INFORMATION
  Report Type: Spontaneous
  Country: FR (occurrence: FR)
  Receive Date: 20200919
  Receipt Date: 20200919
  Transmission Date: 20201103
  Serious: Yes (Hospitalization, Other)
  Sender: FDA-Public Use
  Company Number: FR-TEVA-660436ISR

PATIENT
  Age: 36 Year
  Sex: Male

DRUGS (2)
  1. CONTRACNE 10 MG [Suspect]
     Active Substance: ISOTRETINOIN
     Indication: FOLLICULITIS
     Dosage: 1 DOSAGE FORMS DAILY;
     Route: 048
     Dates: start: 20160219, end: 20160315
  2. ISOTRETINOINE TEVA 20 MG [Suspect]
     Active Substance: ISOTRETINOIN
     Indication: FOLLICULITIS
     Dosage: 1 DOSAGE FORMS DAILY;
     Route: 048
     Dates: start: 201601, end: 20160315

REACTIONS (2)
  - Depression [Not Recovered/Not Resolved]
  - Erythema [Not Recovered/Not Resolved]

NARRATIVE: CASE EVENT DATE: 20160315
